FAERS Safety Report 17232382 (Version 1)
Quarter: 2020Q1

REPORT INFORMATION
  Report Type: Spontaneous
  Country: US (occurrence: US)
  Receive Date: 20200103
  Receipt Date: 20200103
  Transmission Date: 20200409
  Serious: No
  Sender: FDA-Public Use
  Company Number: US-SA-2019SA358437

PATIENT
  Age: 19 Year
  Sex: Female

DRUGS (33)
  1. VITAMIN D3 [Concomitant]
     Active Substance: CHOLECALCIFEROL
  2. TOPIRAMATE. [Concomitant]
     Active Substance: TOPIRAMATE
  3. PROMETHAZINE [Concomitant]
     Active Substance: PROMETHAZINE HYDROCHLORIDE
  4. PRALUENT [Concomitant]
     Active Substance: ALIROCUMAB
  5. LEVALBUTEROL [LEVOSALBUTAMOL] [Concomitant]
     Active Substance: LEVALBUTEROL
  6. ISOSORBIDE MONONITRATE. [Concomitant]
     Active Substance: ISOSORBIDE MONONITRATE
  7. NITROGLYCERIN. [Concomitant]
     Active Substance: NITROGLYCERIN
  8. MIRALAX [Concomitant]
     Active Substance: POLYETHYLENE GLYCOL 3350
  9. LOSARTAN. [Concomitant]
     Active Substance: LOSARTAN
  10. ASPIRIN [ACETYLSALICYLIC ACID] [Concomitant]
     Active Substance: ASPIRIN
  11. HYDROXYZINE [Concomitant]
     Active Substance: HYDROXYZINE HYDROCHLORIDE
  12. SPIRIVA [Concomitant]
     Active Substance: TIOTROPIUM BROMIDE MONOHYDRATE
  13. RANITIDINE. [Concomitant]
     Active Substance: RANITIDINE
  14. OMEPRAZOLE. [Concomitant]
     Active Substance: OMEPRAZOLE
  15. NORVASC [Concomitant]
     Active Substance: AMLODIPINE BESYLATE
  16. AMOXICILLIN AND CLAVUNATE POTASSIUM [Concomitant]
     Active Substance: AMOXICILLIN\CLAVULANATE POTASSIUM
  17. MOMETASONE [Concomitant]
     Active Substance: MOMETASONE
  18. FLUTICASONE. [Concomitant]
     Active Substance: FLUTICASONE
  19. XOPENEX [Concomitant]
     Active Substance: LEVALBUTEROL HYDROCHLORIDE
  20. TYLENOL [Concomitant]
     Active Substance: ACETAMINOPHEN
  21. ROSUVASTATIN. [Concomitant]
     Active Substance: ROSUVASTATIN
  22. QVAR [Concomitant]
     Active Substance: BECLOMETHASONE DIPROPIONATE
     Dosage: UNK
  23. TACROLIMUS. [Concomitant]
     Active Substance: TACROLIMUS
  24. DUPIXENT [Suspect]
     Active Substance: DUPILUMAB
     Indication: DERMATITIS ATOPIC
     Dosage: 600 MG, 1X
     Route: 058
  25. PREDNISONE. [Concomitant]
     Active Substance: PREDNISONE
  26. ONDANSETRON [Concomitant]
     Active Substance: ONDANSETRON
  27. DULERA [Concomitant]
     Active Substance: FORMOTEROL FUMARATE DIHYDRATE\MOMETASONE FUROATE
  28. FISH OIL [Concomitant]
     Active Substance: FISH OIL
  29. DICYCLOMINE [Concomitant]
     Active Substance: DICYCLOMINE HYDROCHLORIDE
  30. IPRATROPIUM [Concomitant]
     Active Substance: IPRATROPIUM
  31. LACTULOSE. [Concomitant]
     Active Substance: LACTULOSE
  32. EZETIMIBE. [Concomitant]
     Active Substance: EZETIMIBE
  33. TRIAMCINOLONE [Concomitant]
     Active Substance: TRIAMCINOLONE

REACTIONS (4)
  - Halo vision [Unknown]
  - Photophobia [Unknown]
  - Ocular hyperaemia [Unknown]
  - Vision blurred [Unknown]

NARRATIVE: CASE EVENT DATE: 20191204
